FAERS Safety Report 20250768 (Version 1)
Quarter: 2021Q4

REPORT INFORMATION
  Report Type: Spontaneous
  Country: US (occurrence: None)
  Receive Date: 20211229
  Receipt Date: 20211229
  Transmission Date: 20220303
  Serious: Yes (Death, Hospitalization)
  Sender: FDA-Public Use
  Company Number: None

PATIENT
  Age: 85 Year
  Sex: Female
  Weight: 86 kg

DRUGS (10)
  1. REGEN-COV [Suspect]
     Active Substance: CASIRIVIMAB\IMDEVIMAB
     Indication: COVID-19
     Dosage: FREQUENCY : ONCE;?
     Route: 058
     Dates: start: 20211018, end: 20211018
  2. APIXABAN [Concomitant]
     Active Substance: APIXABAN
     Dates: end: 20211023
  3. BARICITINIB [Concomitant]
     Active Substance: BARICITINIB
  4. DEXAMETHASONE [Concomitant]
     Active Substance: DEXAMETHASONE
  5. ENOXAPARIN [Concomitant]
     Active Substance: ENOXAPARIN
  6. INSULIN GLARGINE [Concomitant]
     Active Substance: INSULIN GLARGINE
  7. LOSARTAN [Concomitant]
     Active Substance: LOSARTAN
  8. METOPROLOL [Concomitant]
     Active Substance: METOPROLOL
  9. REMDESIVIR [Concomitant]
     Active Substance: REMDESIVIR
     Dates: start: 20211018, end: 20211022
  10. QUETIAPINE [Concomitant]
     Active Substance: QUETIAPINE

REACTIONS (2)
  - Hypoxia [None]
  - Condition aggravated [None]

NARRATIVE: CASE EVENT DATE: 20211018
